FAERS Safety Report 8995820 (Version 1)
Quarter: 2013Q1

REPORT INFORMATION
  Report Type: Spontaneous
  Country: MX (occurrence: MX)
  Receive Date: 20130103
  Receipt Date: 20130103
  Transmission Date: 20140127
  Serious: Yes (Other)
  Sender: FDA-Public Use
  Company Number: PHHY2012MX121100

PATIENT
  Age: 81 Year
  Sex: Female

DRUGS (13)
  1. ONBREZ [Suspect]
     Indication: CHRONIC OBSTRUCTIVE PULMONARY DISEASE
     Dosage: 300 UG, QD
     Dates: start: 201201
  2. PRADAXAR [Concomitant]
     Dosage: 75 MG, QD
     Dates: start: 2007
  3. OMEPRAZOL [Concomitant]
     Indication: DYSPEPSIA
     Dosage: 1 DF, UNK
     Dates: start: 2010
  4. FERROUS SULFATE [Concomitant]
     Dosage: 1 DF, UNK
     Dates: start: 2011
  5. FOLIC ACID [Concomitant]
     Dosage: 1 DF, UNK
     Dates: start: 2012
  6. AMLODIPINE [Concomitant]
     Indication: HYPERTENSION
     Dosage: 1 DF, UNK
     Dates: start: 2007
  7. ROFUCAL [Concomitant]
     Indication: POLYURIA
     Dosage: 1 DF, UNK
     Dates: start: 2007
  8. B COMPLEX [Concomitant]
     Dosage: 1 DF, UNK
     Dates: start: 201209
  9. EUTIROX [Concomitant]
     Dosage: 75 MG, UNK
     Dates: start: 2010
  10. COMBIVENT [Concomitant]
     Indication: CHRONIC OBSTRUCTIVE PULMONARY DISEASE
     Dosage: 3 DF, UNK
     Dates: start: 2010
  11. GAAP [Concomitant]
     Dosage: 2 DRP, UNK
     Dates: start: 2011
  12. AZARGA [Concomitant]
     Dosage: 2 DRP, UNK
     Dates: start: 201210
  13. OXYGEN [Concomitant]
     Dosage: UNK

REACTIONS (3)
  - Cataract [Not Recovered/Not Resolved]
  - Glaucoma [Not Recovered/Not Resolved]
  - Blood glucose increased [Not Recovered/Not Resolved]
